FAERS Safety Report 5293668-1 (Version None)
Quarter: 2007Q2

REPORT INFORMATION
  Report Type: 
  Country: None (occurrence: None)
  Receive Date: 20070411
  Receipt Date: 20070329
  Transmission Date: 20071010
  Serious: No
  Sender: FDA-Public Use
  Company Number: US-SHR-US-2006-040833

PATIENT
  Age: 41 Year
  Sex: Female
  Weight: 86.168 kg

DRUGS (2)
  1. BETASERON [Suspect]
     Dosage: 8 MIU, EVERY 2D
     Route: 058
     Dates: start: 20051201
  2. PRENATAL VITAMINS [Concomitant]

REACTIONS (6)
  - ANAEMIA [None]
  - CARPAL TUNNEL SYNDROME [None]
  - CHOLELITHIASIS [None]
  - HYPOAESTHESIA [None]
  - OVARIAN CYST [None]
  - UTERINE LEIOMYOMA [None]
